FAERS Safety Report 9315081 (Version 2)
Quarter: 2013Q3

REPORT INFORMATION
  Report Type: Spontaneous
  Country: US (occurrence: US)
  Receive Date: 20130529
  Receipt Date: 20130725
  Transmission Date: 20140515
  Serious: Yes (Other)
  Sender: FDA-Public Use
  Company Number: US-JNJFOC-20130510523

PATIENT
  Sex: 0

DRUGS (2)
  1. IMODIUM [Suspect]
     Indication: SELF-MEDICATION
     Dosage: MORE THAN INDICATED, AVERAGING 70MG/ DAY
     Route: 048
  2. IMODIUM [Suspect]
     Indication: EUPHORIC MOOD
     Dosage: MORE THAN INDICATED, AVERAGING 70MG/ DAY
     Route: 048

REACTIONS (1)
  - Drug abuse [Unknown]
